FAERS Safety Report 4844948-2 (Version None)
Quarter: 2005Q4

REPORT INFORMATION
  Report Type: 
  Country: None (occurrence: None)
  Receive Date: 20051201
  Receipt Date: 20051201
  Transmission Date: 20060501
  Serious: Yes (Other)
  Sender: FDA-Public Use
  Company Number: None

PATIENT
  Sex: Female
  Weight: 74.8435 kg

DRUGS (1)
  1. DIFFERIN [Suspect]
     Indication: ACNE
     Dosage: APPLY THIN LAYER TO FACE  1 X DAY TOP
     Route: 061
     Dates: start: 20040701, end: 20051115

REACTIONS (1)
  - ALOPECIA EFFLUVIUM [None]
